FAERS Safety Report 7567926-1 (Version None)
Quarter: 2011Q2

REPORT INFORMATION
  Report Type: 
  Country: None (occurrence: None)
  Receive Date: 20110623
  Receipt Date: 20110614
  Transmission Date: 20111010
  Serious: Yes (Hospitalization)
  Sender: FDA-Public Use
  Company Number: FR-SANOFI-AVENTIS-2011SA037446

PATIENT
  Age: 76 Year
  Sex: Female

DRUGS (10)
  1. DETENSIEL [Concomitant]
     Route: 065
  2. CORDARONE [Concomitant]
     Route: 065
  3. RIFADIN [Suspect]
     Route: 048
     Dates: start: 20110429, end: 20110503
  4. ALLOPURINOL [Concomitant]
     Route: 065
  5. IRBESARTAN + HYDROCHLOROTHIAZIDE [Suspect]
     Route: 065
  6. ACETAMINOPHEN [Concomitant]
     Route: 065
  7. LOVENOX [Concomitant]
     Route: 065
  8. FUCIDINE CAP [Suspect]
     Route: 048
     Dates: start: 20110429, end: 20110503
  9. CORVASAL [Concomitant]
     Route: 065
  10. NEURONTIN [Concomitant]
     Route: 065

REACTIONS (4)
  - JAUNDICE [None]
  - HYPERBILIRUBINAEMIA [None]
  - CHOLESTASIS [None]
  - BLOOD ALKALINE PHOSPHATASE INCREASED [None]
